FAERS Safety Report 5484849-2 (Version None)
Quarter: 2007Q4

REPORT INFORMATION
  Report Type: 
  Country: None (occurrence: None)
  Receive Date: 20071010
  Receipt Date: 20070925
  Transmission Date: 20080405
  Serious: Yes (Hospitalization)
  Sender: FDA-Public Use
  Company Number: 2007BM000127

PATIENT
  Age: 24 Year
  Sex: Female

DRUGS (5)
  1. PREDNISONE [Suspect]
     Indication: SYSTEMIC LUPUS ERYTHEMATOSUS
     Dosage: 60 MG/QD; 12.5 MG/QD; 40 MG/QD;
     Dates: start: 19990901
  2. PREDNISONE [Suspect]
     Indication: SYSTEMIC LUPUS ERYTHEMATOSUS
     Dosage: 60 MG/QD; 12.5 MG/QD; 40 MG/QD;
     Dates: start: 19990901
  3. PREDNISONE [Suspect]
     Indication: SYSTEMIC LUPUS ERYTHEMATOSUS
     Dosage: 60 MG/QD; 12.5 MG/QD; 40 MG/QD;
     Dates: start: 20000901
  4. PREDNISONE [Suspect]
     Indication: SYSTEMIC LUPUS ERYTHEMATOSUS
     Dosage: 60 MG/QD; 12.5 MG/QD; 40 MG/QD;
     Dates: start: 20000901
  5. ORAPRED [Suspect]

REACTIONS (4)
  - CEREBRAL TOXOPLASMOSIS [None]
  - HEMIANOPIA HOMONYMOUS [None]
  - HEMIPARESIS [None]
  - LOSS OF CONSCIOUSNESS [None]
